FAERS Safety Report 24026848 (Version 2)
Quarter: 2024Q2

REPORT INFORMATION
  Report Type: Report from Study
  Country: CN (occurrence: CN)
  Receive Date: 20240628
  Receipt Date: 20240628
  Transmission Date: 20240716
  Serious: No
  Sender: FDA-Public Use
  Company Number: CN-ROCHE-3563232

PATIENT
  Age: 65 Year
  Sex: Female
  Weight: 57.0 kg

DRUGS (20)
  1. ALECTINIB [Suspect]
     Active Substance: ALECTINIB
     Indication: Non-small cell lung cancer metastatic
     Route: 048
     Dates: start: 20211202
  2. ALECTINIB [Suspect]
     Active Substance: ALECTINIB
     Route: 048
     Dates: start: 20210915
  3. UBIDECARENONE [Concomitant]
     Active Substance: UBIDECARENONE
     Route: 048
     Dates: start: 20211004
  4. PHOSPHOLIPID [Concomitant]
     Active Substance: PHOSPHOLIPID
     Route: 048
     Dates: start: 20220614
  5. COMPOUND GLYCYRRHIZA [Concomitant]
     Route: 048
     Dates: start: 20221024
  6. DISODIUM CANTHARIDINATE AND VITAMIN B6 [Concomitant]
     Route: 042
     Dates: start: 20240120, end: 20240120
  7. DISODIUM CANTHARIDINATE AND VITAMIN B6 [Concomitant]
     Route: 042
     Dates: start: 20230825, end: 20230825
  8. DISODIUM CANTHARIDINATE AND VITAMIN B6 [Concomitant]
     Route: 042
     Dates: start: 20231107, end: 20231107
  9. MAGNESIUM ISOGLYCYRRHIZINATE [Concomitant]
     Active Substance: MAGNESIUM ISOGLYCYRRHIZINATE
     Route: 042
     Dates: start: 20240120, end: 20240120
  10. MAGNESIUM ISOGLYCYRRHIZINATE [Concomitant]
     Active Substance: MAGNESIUM ISOGLYCYRRHIZINATE
     Route: 042
     Dates: start: 20231107, end: 20231107
  11. ACETYLCYSTEINE [Concomitant]
     Active Substance: ACETYLCYSTEINE
     Indication: Cough
     Route: 048
     Dates: start: 20240115, end: 20240120
  12. ACETYLCYSTEINE [Concomitant]
     Active Substance: ACETYLCYSTEINE
     Route: 048
     Dates: start: 20240123, end: 20240214
  13. ACETYLCYSTEINE [Concomitant]
     Active Substance: ACETYLCYSTEINE
     Route: 048
     Dates: start: 20231113, end: 20231124
  14. CARBAZOCHROME SODIUM SULFONATE [Concomitant]
     Active Substance: CARBAZOCHROME SODIUM SULFONATE
     Route: 048
     Dates: start: 20240130, end: 20240203
  15. ZOLEDRONIC ACID [Concomitant]
     Active Substance: ZOLEDRONIC ACID
     Route: 042
     Dates: start: 20231205, end: 20231205
  16. ZOLEDRONIC ACID [Concomitant]
     Active Substance: ZOLEDRONIC ACID
     Route: 042
     Dates: start: 20230825, end: 20230825
  17. ZOLEDRONIC ACID [Concomitant]
     Active Substance: ZOLEDRONIC ACID
     Route: 042
     Dates: start: 20230922, end: 20230922
  18. ZOLEDRONIC ACID [Concomitant]
     Active Substance: ZOLEDRONIC ACID
     Route: 042
     Dates: start: 20231107, end: 20231107
  19. ROXATIDINE ACETATE HYDROCHLORIDE [Concomitant]
     Active Substance: ROXATIDINE ACETATE HYDROCHLORIDE
     Route: 042
     Dates: start: 20230825, end: 20230825
  20. MOXIFLOXACIN HYDROCHLORIDE [Concomitant]
     Active Substance: MOXIFLOXACIN HYDROCHLORIDE\MOXIFLOXACIN HYDROCHLORIDE MONOHYDRATE
     Indication: Upper respiratory tract infection
     Route: 048
     Dates: start: 20231113, end: 20231124

REACTIONS (2)
  - Pneumonia [Recovered/Resolved]
  - Dermatitis [Recovered/Resolved]

NARRATIVE: CASE EVENT DATE: 20230920
